FAERS Safety Report 7965368-8 (Version None)
Quarter: 2011Q4

REPORT INFORMATION
  Report Type: 
  Country: None (occurrence: None)
  Receive Date: 20111208
  Receipt Date: 20111129
  Transmission Date: 20120403
  Serious: Yes (Life-Threatening, Hospitalization)
  Sender: FDA-Public Use
  Company Number: US-BAYER-2011-031428

PATIENT
  Age: 35 Year
  Sex: Female
  Weight: 122.45 kg

DRUGS (20)
  1. IMITREX [Concomitant]
     Dosage: UNK
     Dates: start: 20030101, end: 20090101
  2. PRILOSEC [Concomitant]
     Dosage: 40 MG, QD
     Route: 048
  3. SPIRIVA [Concomitant]
     Dosage: 18 MCG/24HR, QD
     Route: 045
  4. WELLBUTRIN XL [Concomitant]
     Dosage: 450 MG, QD
     Route: 048
  5. ZITHROMAX [Concomitant]
     Indication: BRONCHITIS
  6. ALBUTEROL [Concomitant]
     Dosage: 1 PUFF(S), BID
     Route: 045
  7. ANTIMIGRAINE PREPARATIONS [Concomitant]
     Indication: MIGRAINE
     Dosage: 4 MG, PRN
     Route: 045
  8. SINGULAIR [Concomitant]
     Dosage: 10 MG, QD
     Route: 048
  9. XANAX [Concomitant]
     Dosage: 2 MG, Q6WK
     Route: 048
  10. LEVOTHYROXINE SODIUM [Concomitant]
     Dosage: 0.05 MG, HS
     Route: 048
  11. NEURONTIN [Concomitant]
     Dosage: 800 MG, QD
     Route: 048
  12. NEURONTIN [Concomitant]
     Dosage: 1600 MG, HS
     Route: 048
  13. DROSPIRENONE AND ETHINYL ESTRADIOL [Suspect]
     Indication: PREMENSTRUAL SYNDROME
     Dosage: UNK
     Dates: start: 20080701, end: 20090701
  14. ADVAIR DISKUS 100/50 [Concomitant]
     Dosage: 1 PUFF(S), BID
     Route: 045
  15. LUNESTA [Concomitant]
     Dosage: 3 MG, HS
     Route: 048
  16. SEROQUEL [Concomitant]
     Dosage: 600 MG, HS
     Route: 048
  17. CEPHALEXIN [Concomitant]
     Dosage: 500 MG, UNK
     Route: 048
  18. FLUCONAZOLE [Concomitant]
     Dosage: 150 MG, UNK
     Route: 048
  19. YASMIN [Suspect]
     Indication: PREMENSTRUAL SYNDROME
     Dosage: UNK
     Dates: start: 20050401, end: 20080701
  20. AZITHROMYCIN [Concomitant]
     Indication: BRONCHITIS
     Dosage: 250 MG, UNK
     Route: 048

REACTIONS (1)
  - PULMONARY EMBOLISM [None]
